FAERS Safety Report 12302528 (Version 1)
Quarter: 2016Q2

REPORT INFORMATION
  Report Type: Spontaneous
  Country: US (occurrence: US)
  Receive Date: 20160425
  Receipt Date: 20160425
  Transmission Date: 20160815
  Serious: Yes (Other)
  Sender: FDA-Public Use
  Company Number: US-SA-2015SA079736

PATIENT

DRUGS (3)
  1. ELIQUIS [Suspect]
     Active Substance: APIXABAN
     Indication: THROMBOSIS PROPHYLAXIS
     Route: 065
     Dates: start: 2015
  2. LOVENOX [Suspect]
     Active Substance: ENOXAPARIN SODIUM
     Route: 065
  3. XARELTO [Suspect]
     Active Substance: RIVAROXABAN
     Route: 065

REACTIONS (1)
  - Haemarthrosis [Unknown]

NARRATIVE: CASE EVENT DATE: 2015
